FAERS Safety Report 13084362 (Version 1)
Quarter: 2017Q1

REPORT INFORMATION
  Report Type: Spontaneous
  Country: CH (occurrence: FR)
  Receive Date: 20170104
  Receipt Date: 20170104
  Transmission Date: 20170428
  Serious: Yes (Other)
  Sender: FDA-Public Use
  Company Number: CH-LPDUSPRD-20161161

PATIENT
  Age: 53 Year
  Sex: Male

DRUGS (2)
  1. DEPAKINE [Concomitant]
     Active Substance: VALPROATE SODIUM
     Dosage: DOSE UNKNOWN
     Route: 048
  2. VENOFER [Suspect]
     Active Substance: IRON SUCROSE
     Dosage: DOSE UNKNOWN
     Route: 041
     Dates: start: 20160721, end: 20160721

REACTIONS (2)
  - Injection site thrombosis [Unknown]
  - Deep vein thrombosis [Unknown]

NARRATIVE: CASE EVENT DATE: 20160721
